FAERS Safety Report 4876645-1 (Version None)
Quarter: 2005Q4

REPORT INFORMATION
  Report Type: 
  Country: None (occurrence: None)
  Receive Date: 20051206
  Receipt Date: 20051013
  Transmission Date: 20060501
  Serious: Yes (Death)
  Sender: FDA-Public Use
  Company Number: USA0510110511

PATIENT
  Age: 35 Year
  Sex: Female

DRUGS (4)
  1. CYMBALTA [Suspect]
     Indication: DEPRESSION
     Dosage: 20 MG DAY
     Dates: start: 20050915, end: 20050901
  2. XANAX [Concomitant]
  3. SEROQUEL [Concomitant]
  4. LEXAPRO [Concomitant]

REACTIONS (1)
  - COMPLETED SUICIDE [None]
